FAERS Safety Report 9377508 (Version 2)
Quarter: 2013Q3

REPORT INFORMATION
  Report Type: Report from Study
  Country: FR (occurrence: FR)
  Receive Date: 20130701
  Receipt Date: 20130703
  Transmission Date: 20140515
  Serious: Yes (Death, Hospitalization, Other)
  Sender: FDA-Public Use
  Company Number: PHHY2009FR20841

PATIENT
  Sex: 0

DRUGS (4)
  1. STI571 [Suspect]
     Dosage: 400 MG, QD
     Dates: start: 20080430, end: 20090430
  2. STI571 [Suspect]
     Dosage: 300 MG, QD
     Dates: start: 20090430, end: 20100420
  3. STI571 [Suspect]
     Dosage: 200 MG, QD
     Dates: start: 20100420, end: 20110325
  4. STI571 [Suspect]
     Dosage: 300 MG, QD
     Dates: start: 20110325

REACTIONS (8)
  - Death [Fatal]
  - Cardiac failure [Unknown]
  - Atrial fibrillation [Unknown]
  - Bronchitis [Unknown]
  - Sodium retention [Unknown]
  - Fluid retention [Unknown]
  - Hyperuricaemia [Unknown]
  - Anaemia [Unknown]
